FAERS Safety Report 17631774 (Version 2)
Quarter: 2020Q2

REPORT INFORMATION
  Report Type: Spontaneous
  Country: IT (occurrence: IT)
  Receive Date: 20200406
  Receipt Date: 20200413
  Transmission Date: 20200713
  Serious: Yes (Other)
  Sender: FDA-Public Use
  Company Number: IT-BAUSCH-BL-2020-010208

PATIENT
  Age: 82 Year
  Sex: Male

DRUGS (3)
  1. FLUOROURACIL. [Suspect]
     Active Substance: FLUOROURACIL
     Indication: OESOPHAGEAL ADENOCARCINOMA
     Dosage: QCY (CYCLICAL)
     Route: 065
     Dates: start: 201512, end: 201605
  2. FOLINIC ACID [Suspect]
     Active Substance: LEUCOVORIN
     Indication: OESOPHAGEAL ADENOCARCINOMA
     Dosage: QCY (CYCLICAL)
     Route: 065
     Dates: start: 201512, end: 201605
  3. OXALIPLATIN. [Suspect]
     Active Substance: OXALIPLATIN
     Indication: OESOPHAGEAL ADENOCARCINOMA
     Dosage: QCY (CYCLICAL)
     Route: 065
     Dates: start: 201512, end: 201605

REACTIONS (1)
  - Haematotoxicity [Unknown]

NARRATIVE: CASE EVENT DATE: 201605
